FAERS Safety Report 15906166 (Version 1)
Quarter: 2019Q1

REPORT INFORMATION
  Report Type: Spontaneous
  Country: US (occurrence: US)
  Receive Date: 20190204
  Receipt Date: 20190204
  Transmission Date: 20190417
  Serious: Yes (Hospitalization, Other)
  Sender: FDA-Public Use
  Company Number: US-OTSUKA-2018_024336

PATIENT
  Sex: Female

DRUGS (4)
  1. ABILIFY [Suspect]
     Active Substance: ARIPIPRAZOLE
     Indication: MAJOR DEPRESSION
  2. ABILIFY [Suspect]
     Active Substance: ARIPIPRAZOLE
     Indication: POST-TRAUMATIC STRESS DISORDER
  3. ABILIFY [Suspect]
     Active Substance: ARIPIPRAZOLE
     Indication: BIPOLAR DISORDER
     Dosage: 15 MG, QD
     Route: 065
     Dates: start: 201306, end: 20150123
  4. ABILIFY [Suspect]
     Active Substance: ARIPIPRAZOLE
     Indication: ANXIETY

REACTIONS (17)
  - Suicide attempt [Unknown]
  - Product use in unapproved indication [Unknown]
  - Eating disorder [Unknown]
  - Divorced [Unknown]
  - Loss of employment [Unknown]
  - Mental disorder [Unknown]
  - Condition aggravated [Unknown]
  - Bankruptcy [Unknown]
  - Homeless [Unknown]
  - Suicidal ideation [Unknown]
  - Compulsive shopping [Unknown]
  - Weight increased [Unknown]
  - Sexually transmitted disease [Unknown]
  - Compulsive hoarding [Unknown]
  - Obsessive-compulsive disorder [Unknown]
  - Economic problem [Unknown]
  - Gambling disorder [Unknown]

NARRATIVE: CASE EVENT DATE: 2013
